FAERS Safety Report 5325627-4 (Version None)
Quarter: 2007Q2

REPORT INFORMATION
  Report Type: 
  Country: None (occurrence: None)
  Receive Date: 20070515
  Receipt Date: 20070504
  Transmission Date: 20071010
  Serious: Yes (Death)
  Sender: FDA-Public Use
  Company Number: CH-PFIZER INC-2007035822

PATIENT
  Sex: Female

DRUGS (2)
  1. EPIRUBICIN HYDROCHLORIDE [Suspect]
     Indication: BREAST NEOPLASM
     Route: 042
     Dates: start: 19970120, end: 19970201
  2. ENDOXAN [Suspect]
     Indication: BREAST NEOPLASM
     Dates: start: 19970120, end: 19970201

REACTIONS (4)
  - INFECTION [None]
  - MYELODYSPLASTIC SYNDROME [None]
  - MYELOFIBROSIS [None]
  - PANCYTOPENIA [None]
